FAERS Safety Report 7489143-6 (Version None)
Quarter: 2011Q2

REPORT INFORMATION
  Report Type: 
  Country: None (occurrence: None)
  Receive Date: 20110518
  Receipt Date: 20110506
  Transmission Date: 20111010
  Serious: Yes (Other)
  Sender: FDA-Public Use
  Company Number: US-BAYER-201025730NA

PATIENT
  Age: 19 Year
  Sex: Female
  Weight: 89.79 kg

DRUGS (12)
  1. FIORICET [Concomitant]
     Indication: HEADACHE
     Dosage: UNK UNK, Q3HR
     Dates: start: 20070605, end: 20070609
  2. POTASSIUM ACETATE [Concomitant]
     Indication: SUPPLEMENTATION THERAPY
     Dosage: UNK
     Dates: start: 20070621
  3. ATIVAN [Concomitant]
     Indication: ANXIETY
  4. DILAUDID [Concomitant]
     Indication: HEADACHE
     Dosage: UNK
     Dates: start: 20070610, end: 20070627
  5. PHENERGAN [Concomitant]
     Indication: NAUSEA
     Dosage: UNK UNK, Q4HR
     Dates: start: 20070610, end: 20070627
  6. YAZ [Suspect]
     Indication: PRODUCT USED FOR UNKNOWN INDICATION
     Dosage: UNK UNK, UNK
     Route: 048
     Dates: start: 20070101, end: 20070601
  7. ACETAMINOPHEN [Concomitant]
     Indication: HEADACHE
     Dosage: 250 MG, QID
     Dates: start: 20070603, end: 20070607
  8. ATIVAN [Concomitant]
     Indication: SLEEP DISORDER
     Dosage: UNK
     Dates: start: 20070601, end: 20070801
  9. PHENERGAN [Concomitant]
     Indication: VOMITING
  10. PHENYTOIN [Concomitant]
     Indication: PRODUCT USED FOR UNKNOWN INDICATION
     Dosage: UNK
     Dates: start: 20070618
  11. WARFARIN SODIUM [Concomitant]
     Indication: ANTIPHOSPHOLIPID SYNDROME
     Dosage: UNK
     Dates: start: 20060601
  12. PROTONIX [Concomitant]
     Indication: PRODUCT USED FOR UNKNOWN INDICATION
     Dosage: UNK
     Dates: start: 20070601, end: 20080301

REACTIONS (3)
  - SUPERIOR SAGITTAL SINUS THROMBOSIS [None]
  - THALAMIC INFARCTION [None]
  - CONVULSION [None]
